FAERS Safety Report 16259069 (Version 5)
Quarter: 2021Q1

REPORT INFORMATION
  Report Type: Report from Study
  Country: JP (occurrence: JP)
  Receive Date: 20190501
  Receipt Date: 20210120
  Transmission Date: 20210419
  Serious: Yes (Death, Hospitalization, Disabling, Other)
  Sender: FDA-Public Use
  Company Number: JP-ASTELLAS-2019JP007645

PATIENT
  Age: 49 Year
  Sex: Male
  Weight: 51 kg

DRUGS (4)
  1. ASP2215 [Suspect]
     Active Substance: GILTERITINIB
     Indication: ACUTE MYELOID LEUKAEMIA RECURRENT
     Route: 048
     Dates: start: 20190307, end: 20190322
  2. VANCOMYCIN [VANCOMYCIN HYDROCHLORIDE] [Concomitant]
     Active Substance: VANCOMYCIN HYDROCHLORIDE
     Indication: INFECTION
     Dosage: UNK UNK, UNKNOWN FREQ.
     Route: 065
  3. MEROPENEM. [Concomitant]
     Active Substance: MEROPENEM
     Indication: INFECTION
     Dosage: UNK UNK, UNKNOWN FREQ.
     Route: 065
  4. ASP2215 [Suspect]
     Active Substance: GILTERITINIB
     Route: 048
     Dates: start: 20190323, end: 20190327

REACTIONS (5)
  - Acute myeloid leukaemia [Fatal]
  - Drug ineffective [Unknown]
  - Myelosuppression [Not Recovered/Not Resolved]
  - Haematuria [Recovered/Resolved]
  - Infection [Not Recovered/Not Resolved]

NARRATIVE: CASE EVENT DATE: 20190307
